FAERS Safety Report 7758136-3 (Version None)
Quarter: 2011Q3

REPORT INFORMATION
  Report Type: 
  Country: None (occurrence: None)
  Receive Date: 20110919
  Receipt Date: 20090708
  Transmission Date: 20111222
  Serious: No
  Sender: FDA-Public Use
  Company Number: 2009BI021057

PATIENT
  Sex: Female

DRUGS (1)
  1. TYSABRI [Suspect]
     Indication: MULTIPLE SCLEROSIS
     Route: 042
     Dates: start: 20090107

REACTIONS (5)
  - GAIT DISTURBANCE [None]
  - ASTHENIA [None]
  - DYSPNOEA [None]
  - DIAPHRAGMATIC DISORDER [None]
  - FATIGUE [None]
